FAERS Safety Report 26140009 (Version 1)
Quarter: 2025Q4

REPORT INFORMATION
  Report Type: Spontaneous
  Country: US (occurrence: None)
  Receive Date: 20251209
  Receipt Date: 20251209
  Transmission Date: 20260117
  Serious: Yes (Disabling)
  Sender: FDA-CTU
  Company Number: None

PATIENT
  Age: 42 Year
  Sex: Female
  Weight: 137.25 kg

DRUGS (21)
  1. METOPROLOL [Suspect]
     Active Substance: METOPROLOL
     Indication: Heart rate
     Dosage: OTHER QUANTITY : 1 TABLET(S);?FREQUENCY : DAILY;
     Route: 048
     Dates: start: 20240417, end: 20251124
  2. METOPROLOL [Suspect]
     Active Substance: METOPROLOL
     Indication: Blood pressure measurement
  3. fluconazole150mg [Concomitant]
  4. METRONIDAZOLE [Concomitant]
     Active Substance: METRONIDAZOLE
  5. linzess 72 mg [Concomitant]
  6. LEVOCETIRIZINE [Concomitant]
     Active Substance: LEVOCETIRIZINE
  7. azelastine 0.1% 137mcg spr [Concomitant]
  8. benzonatate 200 mg cap [Concomitant]
  9. losartan/hctz 100-25 mg tab [Concomitant]
  10. metaxalone 800 mg [Concomitant]
  11. omeprazole 40 mg cap [Concomitant]
  12. GABAPENTIN [Concomitant]
     Active Substance: GABAPENTIN
  13. AMLODIPINE [Concomitant]
     Active Substance: AMLODIPINE BESYLATE
  14. IBUPROFEN [Concomitant]
     Active Substance: IBUPROFEN
  15. ferrous sulfa 325 mg tab [Concomitant]
  16. folic acid 1 mg tab [Concomitant]
  17. ipratropium/ albuter sol [Concomitant]
  18. brimonidine 0.1% sol [Concomitant]
  19. dorzolamide op 2% sol [Concomitant]
  20. pota chloride er 20mcq tab [Concomitant]
  21. nature^s way alive multivitamin [Concomitant]

REACTIONS (15)
  - Chest discomfort [None]
  - Chest pain [None]
  - Pruritus [None]
  - Weight increased [None]
  - Dyspnoea [None]
  - Joint swelling [None]
  - Dizziness [None]
  - Dizziness [None]
  - Vision blurred [None]
  - Feeling cold [None]
  - Hypoaesthesia [None]
  - Pain in extremity [None]
  - Affective disorder [None]
  - Depression [None]
  - Headache [None]

NARRATIVE: CASE EVENT DATE: 20240801
